FAERS Safety Report 10442415 (Version 1)
Quarter: 2014Q3

REPORT INFORMATION
  Report Type: Spontaneous
  Country: US (occurrence: None)
  Receive Date: 20140908
  Receipt Date: 20140908
  Transmission Date: 20150326
  Serious: Yes (Other)
  Sender: FDA-Public Use
  Company Number: 2014-US-010994

PATIENT
  Age: 51 Year
  Sex: Female

DRUGS (1)
  1. XYREM [Suspect]
     Active Substance: SODIUM OXYBATE
     Indication: NARCOLEPSY
     Route: 048
     Dates: start: 20140814, end: 20140820

REACTIONS (7)
  - Dizziness [None]
  - Aphagia [None]
  - Hypophagia [None]
  - Abasia [None]
  - Feeling abnormal [None]
  - Nausea [None]
  - Hyporeflexia [None]

NARRATIVE: CASE EVENT DATE: 201408
